FAERS Safety Report 26102200 (Version 2)
Quarter: 2025Q4

REPORT INFORMATION
  Report Type: Spontaneous
  Country: US (occurrence: US)
  Receive Date: 20251128
  Receipt Date: 20251217
  Transmission Date: 20260117
  Serious: Yes (Other)
  Sender: KEDRION
  Company Number: US-KEDRION-010647

PATIENT
  Age: 0 Day
  Sex: Male
  Weight: 4.082 kg

DRUGS (1)
  1. RHOGAM [Suspect]
     Active Substance: HUMAN RHO(D) IMMUNE GLOBULIN
     Indication: Product used for unknown indication
     Dosage: TRANSPLACENTAL ROUTE OF ADMINISTRATION
     Route: 065
     Dates: start: 20250701

REACTIONS (2)
  - Shoulder dystocia [Recovered/Resolved]
  - Foetal exposure during pregnancy [Unknown]

NARRATIVE: CASE EVENT DATE: 20251001
